FAERS Safety Report 4389866-1 (Version None)
Quarter: 2004Q2

REPORT INFORMATION
  Report Type: 
  Country: None (occurrence: None)
  Receive Date: 20040630
  Receipt Date: 20040618
  Transmission Date: 20050107
  Serious: Yes (Other)
  Sender: FDA-Public Use
  Company Number: 237727

PATIENT
  Sex: Male
  Weight: 3.4 kg

DRUGS (9)
  1. INSULIN ASPART [Suspect]
     Indication: DIABETES MELLITUS INSULIN-DEPENDENT
     Dosage: SEE IMAGE
     Route: 015
     Dates: start: 20031119, end: 20040616
  2. INSULIN ASPART [Suspect]
     Indication: DIABETES MELLITUS INSULIN-DEPENDENT
     Dosage: SEE IMAGE
     Route: 015
     Dates: start: 20040617
  3. PROTAPHANE HM PENFILL (INSULIN HUMAN) SUSPENSION FOR INJECTION [Concomitant]
  4. CALCIUM GLUCONATE [Concomitant]
  5. PANANGIN (ASPARTATE POTASSIUM, MAGNESIUM, ASPARTATE) [Concomitant]
  6. MAGNESIUM SULFATE [Concomitant]
  7. ASCOBIC ACID (ASCORBIC ACID) [Concomitant]
  8. VITAMIN B6 [Concomitant]
  9. ETAMSILATE (ETAMSILATE) [Concomitant]

REACTIONS (4)
  - APGAR SCORE LOW [None]
  - CAESAREAN SECTION [None]
  - DRUG EXPOSURE DURING PREGNANCY [None]
  - HYPOGLYCAEMIA NEONATAL [None]
